FAERS Safety Report 4596080-3 (Version None)
Quarter: 2005Q1

REPORT INFORMATION
  Report Type: 
  Country: None (occurrence: None)
  Receive Date: 20050302
  Receipt Date: 20041029
  Transmission Date: 20050727
  Serious: Yes (Other)
  Sender: FDA-Public Use
  Company Number: JP-SOLVAY-00304003895

PATIENT
  Age: 26460 Day
  Sex: Male
  Weight: 60 kg

DRUGS (11)
  1. DEPROMEL 25 [Suspect]
     Indication: PAIN IN EXTREMITY
     Dosage: DAILY DOSE: 50 MILLIGRAM(S)
     Route: 048
     Dates: start: 20041016, end: 20041019
  2. PLETAL [Suspect]
     Indication: MYOCARDIAL INFARCTION
     Dosage: DAILY DOSE: 200 MILLIGRAM(S)
     Route: 048
  3. PREDONINE [Suspect]
     Indication: MUSCULOSKELETAL PAIN
     Dosage: DAILY DOSE: 10 MILLIGRAM(S)
     Route: 048
  4. ASPIRIN [Suspect]
     Indication: MYOCARDIAL INFARCTION
     Dosage: DAILY DOSE: 100 MILLIGRAM(S)
     Route: 048
  5. AZULFIDINE EN-TABS [Suspect]
     Indication: MUSCULOSKELETAL PAIN
     Dosage: DAILY DOSE: 500 MILLIGRAM(S)
     Route: 048
  6. SIGMART [Suspect]
     Indication: MYOCARDIAL INFARCTION
     Dosage: DAILY DOSE: 15 MILLIGRAM(S)
     Route: 048
  7. MAGLAX [Suspect]
     Indication: CONSTIPATION
     Dosage: DAILY DOSE: 990 MILLIGRAM(S)
     Route: 048
  8. LOXONIN [Suspect]
     Indication: PAIN IN EXTREMITY
     Dosage: DAILY DOSE:  UNKNOWN
     Route: 048
  9. MUCOSTA [Suspect]
     Indication: GASTRITIS
     Dosage: DAILY DOSE:  UNKNOWN
     Route: 048
  10. PURSENNID [Suspect]
     Indication: CONSTIPATION
     Dosage: DAILY DOSE: 24 MILLIGRAM(S)
     Route: 048
  11. AMOBAN [Suspect]
     Indication: INSOMNIA
     Dosage: DAILY DOSE:  UNKNOWN
     Route: 048

REACTIONS (2)
  - ANURIA [None]
  - SHOCK [None]
